FAERS Safety Report 15298223 (Version 1)
Quarter: 2018Q3

REPORT INFORMATION
  Report Type: Spontaneous
  Country: US (occurrence: US)
  Receive Date: 20180820
  Receipt Date: 20180820
  Transmission Date: 20181010
  Serious: No
  Sender: FDA-Public Use
  Company Number: US-ALLERGAN-1823878US

PATIENT
  Sex: Female

DRUGS (1)
  1. ASENAPINE MALEATE ? BP [Suspect]
     Active Substance: ASENAPINE MALEATE
     Indication: AUTISM SPECTRUM DISORDER
     Dosage: UNK
     Route: 060

REACTIONS (3)
  - Wrong technique in product usage process [Unknown]
  - Product taste abnormal [Unknown]
  - Product use in unapproved indication [Unknown]
